FAERS Safety Report 5746164-9 (Version None)
Quarter: 2008Q2

REPORT INFORMATION
  Report Type: 
  Country: None (occurrence: None)
  Receive Date: 20080519
  Receipt Date: 20080125
  Transmission Date: 20081010
  Serious: No
  Sender: FDA-Public Use
  Company Number: TPA2008A00118

PATIENT
  Age: 48 Year
  Sex: Male

DRUGS (4)
  1. ROZEREM [Suspect]
     Indication: INSOMNIA
     Dosage: PER ORAL
     Route: 048
  2. PEGASYS [Concomitant]
  3. RIBAVIRIN [Concomitant]
  4. MIRTAZAPINE [Concomitant]

REACTIONS (1)
  - DRUG INEFFECTIVE [None]
